FAERS Safety Report 9322292 (Version 1)
Quarter: 2013Q2

REPORT INFORMATION
  Report Type: Spontaneous
  Country: DE (occurrence: DE)
  Receive Date: 20130531
  Receipt Date: 20130531
  Transmission Date: 20140414
  Serious: Yes (Hospitalization, Congenital Anomaly, Other)
  Sender: FDA-Public Use
  Company Number: DE-LUNDBECK-DKLU1091321

PATIENT
  Sex: Female

DRUGS (4)
  1. ONFI [Suspect]
     Indication: CONVULSION
     Route: 064
     Dates: end: 20120623
  2. LAMOTRIGINE [Concomitant]
     Indication: CONVULSION
     Route: 064
  3. VIANI [Concomitant]
     Indication: ASTHMA
     Route: 064
     Dates: end: 20120623
  4. SALBUTAMOL [Concomitant]
     Indication: ASTHMA
     Route: 064
     Dates: end: 20120623

REACTIONS (2)
  - Atrial septal defect [Unknown]
  - Drug withdrawal syndrome neonatal [Recovered/Resolved]
